FAERS Safety Report 11852994 (Version 3)
Quarter: 2017Q1

REPORT INFORMATION
  Report Type: Report from Study
  Country: US (occurrence: US)
  Receive Date: 20151218
  Receipt Date: 20170320
  Transmission Date: 20170428
  Serious: Yes (Hospitalization, Other)
  Sender: FDA-Public Use
  Company Number: US-BIOGEN-2010BI040547

PATIENT
  Age: 53 Year
  Sex: Female

DRUGS (3)
  1. TYSABRI [Suspect]
     Active Substance: NATALIZUMAB
     Indication: MULTIPLE SCLEROSIS
     Route: 042
     Dates: start: 20100122, end: 20111024
  2. TYSABRI [Suspect]
     Active Substance: NATALIZUMAB
     Route: 042
     Dates: start: 20150508
  3. TYSABRI [Suspect]
     Active Substance: NATALIZUMAB
     Route: 042
     Dates: start: 20120816, end: 20140603

REACTIONS (31)
  - Hypoaesthesia [Not Recovered/Not Resolved]
  - Ear haemorrhage [Recovered/Resolved]
  - Urinary tract infection [Recovered/Resolved]
  - Injury associated with device [Unknown]
  - Abasia [Unknown]
  - Foot fracture [Unknown]
  - Panic attack [Unknown]
  - Nerve injury [Unknown]
  - Tremor [Recovered/Resolved]
  - Depression [Not Recovered/Not Resolved]
  - Ear pain [Recovered/Resolved]
  - Fatigue [Recovered/Resolved]
  - Intracardiac thrombus [Unknown]
  - Muscle spasms [Recovered/Resolved]
  - Pain [Recovered/Resolved]
  - Musculoskeletal stiffness [Not Recovered/Not Resolved]
  - Malaise [Not Recovered/Not Resolved]
  - Vision blurred [Not Recovered/Not Resolved]
  - Rotator cuff syndrome [Recovered/Resolved]
  - Herpes zoster [Recovered/Resolved]
  - Peripheral swelling [Recovered/Resolved]
  - Multiple sclerosis [Not Recovered/Not Resolved]
  - Multiple sclerosis relapse [Unknown]
  - Cerebrovascular accident [Recovered/Resolved]
  - Chest pain [Unknown]
  - Cognitive disorder [Not Recovered/Not Resolved]
  - Tooth disorder [Recovered/Resolved]
  - Tinnitus [Not Recovered/Not Resolved]
  - Rash papular [Not Recovered/Not Resolved]
  - Gastritis [Unknown]
  - Ear discomfort [Not Recovered/Not Resolved]

NARRATIVE: CASE EVENT DATE: 2010
